FAERS Safety Report 8340296-7 (Version None)
Quarter: 2012Q2

REPORT INFORMATION
  Report Type: 
  Country: None (occurrence: None)
  Receive Date: 20120507
  Receipt Date: 20120507
  Transmission Date: 20120825
  Serious: Yes (Other)
  Sender: FDA-Public Use
  Company Number: None

PATIENT
  Age: 53 Year
  Sex: Female
  Weight: 48.534 kg

DRUGS (1)
  1. RECLAST [Suspect]
     Indication: OSTEOPOROSIS
     Dosage: |DOSAGETEXT: 4MG||STRENGTH: 5MG/100 CC||FREQ: ONCE||ROUTE: INTRAVENOUS DRIP|
     Route: 041
     Dates: start: 20120326, end: 20120326

REACTIONS (25)
  - NIGHT SWEATS [None]
  - DEHYDRATION [None]
  - RENAL IMPAIRMENT [None]
  - ERYTHEMA [None]
  - BUNION [None]
  - THIRST [None]
  - NAUSEA [None]
  - ASTHENIA [None]
  - PAIN IN EXTREMITY [None]
  - DIZZINESS [None]
  - FATIGUE [None]
  - ARTHRALGIA [None]
  - VOMITING [None]
  - FEELING ABNORMAL [None]
  - DYSSTASIA [None]
  - CHILLS [None]
  - SOMNOLENCE [None]
  - ACUTE PHASE REACTION [None]
  - BLOOD CREATININE INCREASED [None]
  - OEDEMA PERIPHERAL [None]
  - DECREASED APPETITE [None]
  - GOUT [None]
  - GAIT DISTURBANCE [None]
  - MUSCULOSKELETAL STIFFNESS [None]
  - PAIN [None]
